APPROVED DRUG PRODUCT: DUZALLO
Active Ingredient: ALLOPURINOL; LESINURAD
Strength: 200MG;200MG
Dosage Form/Route: TABLET;ORAL
Application: N209203 | Product #001
Applicant: IRONWOOD PHARMACEUTICALS INC
Approved: Aug 18, 2017 | RLD: Yes | RS: No | Type: DISCN

PATENTS:
Patent 9216179 | Expires: Aug 1, 2031
Patent 8546437 | Expires: Apr 29, 2029
Patent 9956205 | Expires: Dec 28, 2031
Patent 8283369 | Expires: Nov 26, 2028
Patent 8084483 | Expires: Aug 17, 2029
Patent 8357713 | Expires: Dec 22, 2029
Patent 10183012 | Expires: Nov 26, 2028
Patent 8546436 | Expires: Feb 29, 2032